FAERS Safety Report 17371298 (Version 1)
Quarter: 2020Q1

REPORT INFORMATION
  Report Type: Spontaneous
  Country: US (occurrence: US)
  Receive Date: 20200205
  Receipt Date: 20200205
  Transmission Date: 20200409
  Serious: No
  Sender: FDA-Public Use
  Company Number: US-ELI_LILLY_AND_COMPANY-US202002002081

PATIENT
  Age: 14 Year
  Sex: Female

DRUGS (1)
  1. HUMATROPE [Suspect]
     Active Substance: SOMATROPIN
     Indication: BODY HEIGHT BELOW NORMAL
     Dosage: 24 MG, UNKNOWN
     Route: 058
     Dates: start: 2017

REACTIONS (3)
  - Injection site pain [Recovered/Resolved]
  - Product storage error [Unknown]
  - Weight increased [Unknown]

NARRATIVE: CASE EVENT DATE: 2017
